FAERS Safety Report 14104456 (Version 3)
Quarter: 2018Q1

REPORT INFORMATION
  Report Type: Spontaneous
  Country: US (occurrence: US)
  Receive Date: 20171018
  Receipt Date: 20180207
  Transmission Date: 20180508
  Serious: Yes (Other)
  Sender: FDA-Public Use
  Company Number: US-AMGEN-USASP2017105906

PATIENT
  Age: 64 Year
  Sex: Female

DRUGS (2)
  1. PROLIA [Suspect]
     Active Substance: DENOSUMAB
     Indication: OSTEOPOROSIS POSTMENOPAUSAL
     Dosage: 60 MG, Q6MO
     Route: 065
     Dates: start: 2016
  2. CALCIUM [Concomitant]
     Active Substance: CALCIUM
     Dosage: 500 MG, QD

REACTIONS (10)
  - Hyperparathyroidism [Recovering/Resolving]
  - Neuralgia [Unknown]
  - Vitamin D increased [Unknown]
  - Bone pain [Not Recovered/Not Resolved]
  - Cystitis [Recovered/Resolved]
  - Malabsorption [Unknown]
  - Low density lipoprotein increased [Unknown]
  - Nasal congestion [Recovered/Resolved]
  - Neurological symptom [Unknown]
  - Alopecia [Unknown]

NARRATIVE: CASE EVENT DATE: 2017
